FAERS Safety Report 6255381-3 (Version None)
Quarter: 2009Q3

REPORT INFORMATION
  Report Type: 
  Country: None (occurrence: None)
  Receive Date: 20090702
  Receipt Date: 20090625
  Transmission Date: 20100115
  Serious: Yes (Hospitalization)
  Sender: FDA-Public Use
  Company Number: PHHY2009FR25955

PATIENT
  Age: 65 Year
  Sex: Female

DRUGS (1)
  1. TASIGNA [Suspect]
     Indication: CHRONIC MYELOID LEUKAEMIA
     Dosage: 800 MG/DAY

REACTIONS (3)
  - ARTERIAL BYPASS OPERATION [None]
  - ARTERIOSCLEROSIS OBLITERANS [None]
  - PERIPHERAL ISCHAEMIA [None]
